FAERS Safety Report 22101802 (Version 2)
Quarter: 2023Q2

REPORT INFORMATION
  Report Type: Report from Study
  Country: US (occurrence: US)
  Receive Date: 20230316
  Receipt Date: 20230523
  Transmission Date: 20230722
  Serious: Yes (Other)
  Sender: FDA-Public Use
  Company Number: US-ABBVIE-4342043

PATIENT
  Age: 75 Year
  Sex: Female
  Weight: 84.821 kg

DRUGS (2)
  1. SKYRIZI [Suspect]
     Active Substance: RISANKIZUMAB-RZAA
     Indication: Psoriasis
     Dosage: FORM STRENGTH: 150 MILLIGRAM
     Route: 058
     Dates: start: 202302, end: 202303
  2. SKYRIZI [Suspect]
     Active Substance: RISANKIZUMAB-RZAA
     Dosage: 150 MG STRENGTH
     Route: 058
     Dates: start: 2017, end: 20221210

REACTIONS (7)
  - Skin cancer [Recovered/Resolved]
  - Hepatic cirrhosis [Unknown]
  - Psoriasis [Not Recovered/Not Resolved]
  - Nose deformity [Unknown]
  - Biopsy liver abnormal [Unknown]
  - Diabetes mellitus [Unknown]
  - Hepatic enzyme abnormal [Unknown]

NARRATIVE: CASE EVENT DATE: 20211201
